FAERS Safety Report 8346784-1 (Version None)
Quarter: 2012Q2

REPORT INFORMATION
  Report Type: 
  Country: None (occurrence: None)
  Receive Date: 20120509
  Receipt Date: 20120503
  Transmission Date: 20120825
  Serious: Yes (Other)
  Sender: FDA-Public Use
  Company Number: BR-PFIZER INC-2012109039

PATIENT
  Sex: Female

DRUGS (1)
  1. PRISTIQ [Suspect]
     Indication: DEPRESSION
     Dosage: 50 MG, ONE TABLET DAILY
     Route: 048
     Dates: start: 20120425

REACTIONS (11)
  - PALPITATIONS [None]
  - DYSURIA [None]
  - NEPHROLITHIASIS [None]
  - DRY MOUTH [None]
  - HEADACHE [None]
  - NAIL DISORDER [None]
  - TACHYCARDIA [None]
  - ORAL MUCOSAL ERYTHEMA [None]
  - VISION BLURRED [None]
  - NAUSEA [None]
  - TREMOR [None]
